FAERS Safety Report 5711685-1 (Version None)
Quarter: 2008Q2

REPORT INFORMATION
  Report Type: 
  Country: None (occurrence: None)
  Receive Date: 20080421
  Receipt Date: 20080414
  Transmission Date: 20081010
  Serious: Yes (Other)
  Sender: FDA-Public Use
  Company Number: GB-PFIZER INC-2008033755

PATIENT
  Age: 67 Year
  Sex: Male
  Weight: 77 kg

DRUGS (9)
  1. CHANTIX [Suspect]
     Route: 048
     Dates: start: 20080314, end: 20080403
  2. ACETYLSALICYLIC ACID SRT [Concomitant]
  3. ATROVENT [Concomitant]
  4. BENDROFLUAZIDE [Concomitant]
  5. LISINOPRIL [Concomitant]
  6. PREDNISOLONE [Concomitant]
  7. ALBUTEROL [Concomitant]
  8. SERETIDE [Concomitant]
  9. TIOTROPIUM BROMIDE [Concomitant]

REACTIONS (1)
  - GLOSSITIS [None]
